FAERS Safety Report 7050291-6 (Version None)
Quarter: 2010Q4

REPORT INFORMATION
  Report Type: 
  Country: None (occurrence: None)
  Receive Date: 20101018
  Receipt Date: 20100826
  Transmission Date: 20110411
  Serious: No
  Sender: FDA-Public Use
  Company Number: US-BAYER-201020586BCC

PATIENT
  Age: 40 Year
  Sex: Female
  Weight: 147 kg

DRUGS (2)
  1. ALEVE [Suspect]
     Indication: BACK PAIN
     Dosage: TOOK 6 TABLETS FROM LATE 19-AUG-2010 TO EARLY 20-AUG-2010
     Route: 048
     Dates: start: 20100819
  2. ASPIRIN [Suspect]
     Indication: HEADACHE
     Route: 048
     Dates: start: 20100301

REACTIONS (3)
  - BACK PAIN [None]
  - HEADACHE [None]
  - PAIN IN EXTREMITY [None]
